FAERS Safety Report 6463566-6 (Version None)
Quarter: 2009Q4

REPORT INFORMATION
  Report Type: 
  Country: None (occurrence: None)
  Receive Date: 20091110
  Receipt Date: 20091029
  Transmission Date: 20100525
  Serious: Yes (Death)
  Sender: FDA-Public Use
  Company Number: THYM-1001201

PATIENT
  Age: 83 Year
  Sex: Male
  Weight: 62 kg

DRUGS (6)
  1. THYMOGLOBULIN [Suspect]
     Indication: APLASTIC ANAEMIA
     Dosage: 2.5 MG/KG, QD, INTRAVENOUS
     Route: 042
     Dates: start: 20090623, end: 20090627
  2. METHYLPREDNISOLONE SODIUM SUCCCINATE (METHYLPREDNISOLONE SODIUM SUCCIN [Concomitant]
  3. CYCLOSPORINE [Concomitant]
  4. ITRACONAZOLE [Concomitant]
  5. LEVOFLOXACIN [Concomitant]
  6. VALACICLOVIR (VALACICLOVIR HYDROCHLORIDE) [Concomitant]

REACTIONS (3)
  - NO THERAPEUTIC RESPONSE [None]
  - PNEUMONIA [None]
  - SEPSIS [None]
